FAERS Safety Report 5919431-3 (Version None)
Quarter: 2008Q4

REPORT INFORMATION
  Report Type: 
  Country: None (occurrence: None)
  Receive Date: 20081015
  Receipt Date: 20081008
  Transmission Date: 20090506
  Serious: Yes (Hospitalization, Other)
  Sender: FDA-Public Use
  Company Number: PHBS2008DE05961

PATIENT
  Age: 5 Month
  Sex: Male

DRUGS (19)
  1. CYCLOSPORINE [Suspect]
     Indication: PEMPHIGOID
     Dosage: 4.2 MG/KG/DAY
  2. CYCLOSPORINE [Suspect]
     Dosage: 3 MG/KG/DAY
  3. CYCLOSPORINE [Suspect]
     Dosage: 2.5 MG/KG/DAY
  4. CYCLOSPORINE [Suspect]
     Dosage: 1.5 MG/KG/DAY
  5. MYCOPHENOLATE MOFETIL [Suspect]
     Dosage: 30 MG/KG/DAY
  6. PREDNISOLONE [Suspect]
     Indication: PEMPHIGOID
     Dosage: 3.5 MG/KG/DAY
  7. PREDNISOLONE [Suspect]
     Dosage: 1.0 MG/KG/DAY
  8. PREDNISOLONE [Suspect]
     Dosage: 0.35 MG/KG/DAY
  9. PREDNISOLONE [Suspect]
     Dosage: 0.15 MG/KG/DAY
  10. PREDNISOLONE [Suspect]
     Dosage: 0.05 MG/KG/DAY
  11. PREDNISOLONE [Suspect]
     Dosage: 0.04 MG/KG/DAY
  12. PREDNISOLONE [Suspect]
     Dosage: 0.02 MG/KG/DAY
  13. IMMUNOGLOBULINS [Concomitant]
     Dosage: 2 G/KG, QMO
     Route: 042
  14. DAPSONE [Concomitant]
     Dosage: 2 MG/KG/DAY
  15. DAPSONE [Concomitant]
     Dosage: 1.5 MG/KG/DAY
  16. DAPSONE [Concomitant]
     Dosage: 1 MG/KG/DAY
  17. DAPSONE [Concomitant]
     Dosage: 0.5 MG/KG/DAY
  18. RITUXIMAB [Concomitant]
     Dosage: 375 MG/M2
  19. RITUXIMAB [Concomitant]
     Dosage: 187.5 MG/M2

REACTIONS (9)
  - B-LYMPHOCYTE COUNT DECREASED [None]
  - BLISTER [None]
  - CONDITION AGGRAVATED [None]
  - CUSHINGOID [None]
  - DRUG INEFFECTIVE [None]
  - NASOPHARYNGITIS [None]
  - NO THERAPEUTIC RESPONSE [None]
  - PEMPHIGOID [None]
  - PYREXIA [None]
